FAERS Safety Report 7824506 (Version 3)
Quarter: 2014Q2

REPORT INFORMATION
  Report Type: Spontaneous
  Country: US (occurrence: US)
  Receive Date: 20110224
  Receipt Date: 20140407
  Transmission Date: 20141212
  Serious: Yes (Hospitalization, Other)
  Sender: FDA-Public Use
  Company Number: US-BAYER-2011-017319

PATIENT
  Age: 24 Year
  Sex: Female
  Weight: 95.24 kg

DRUGS (3)
  1. YAZ [Suspect]
     Indication: ACNE
     Dosage: UNK
     Route: 048
     Dates: start: 20080130, end: 200807
  2. CODEINE [Concomitant]
     Dosage: 300 MG, UNK
     Dates: start: 20090514
  3. ACETAMINOPHEN W/HYDROCODONE [Concomitant]
     Indication: PAIN
     Dosage: 500 MG, UNK
     Dates: start: 20090417, end: 20090605

REACTIONS (4)
  - Cholelithiasis [None]
  - Cholecystitis [None]
  - Pain [None]
  - Injury [None]
